FAERS Safety Report 20494044 (Version 2)
Quarter: 2022Q1

REPORT INFORMATION
  Report Type: Spontaneous
  Country: PL (occurrence: PL)
  Receive Date: 20220221
  Receipt Date: 20220323
  Transmission Date: 20220423
  Serious: Yes (Hospitalization)
  Sender: FDA-Public Use
  Company Number: PL-NOVARTISPH-NVSC2022PL036089

PATIENT
  Age: 70 Year
  Sex: Female

DRUGS (30)
  1. CARBOPLATIN [Suspect]
     Active Substance: CARBOPLATIN
     Indication: Endometrial cancer
     Dosage: 395 MG, TOTAL
     Route: 042
     Dates: start: 20210420, end: 20210420
  2. CARBOPLATIN [Suspect]
     Active Substance: CARBOPLATIN
     Dosage: 395 MG, ONCE/SINGLE
     Route: 042
     Dates: start: 20210420, end: 20210420
  3. CARBOPLATIN [Suspect]
     Active Substance: CARBOPLATIN
     Dosage: 300 MG, TOTAL
     Route: 042
     Dates: start: 20210511, end: 20210511
  4. CARBOPLATIN [Suspect]
     Active Substance: CARBOPLATIN
     Dosage: 300 MG, ONCE/SINGLE
     Route: 042
     Dates: start: 20210511, end: 20210511
  5. CARBOPLATIN [Suspect]
     Active Substance: CARBOPLATIN
     Dosage: 290 MG, TOTAL
     Route: 042
     Dates: start: 20210601, end: 20210601
  6. CARBOPLATIN [Suspect]
     Active Substance: CARBOPLATIN
     Dosage: 290 MG, ONCE/SINGLE
     Route: 042
     Dates: start: 20210601, end: 20210601
  7. CARBOPLATIN [Suspect]
     Active Substance: CARBOPLATIN
     Dosage: 305 MG, TOTAL
     Route: 042
     Dates: start: 20210622, end: 20210622
  8. CARBOPLATIN [Suspect]
     Active Substance: CARBOPLATIN
     Dosage: 305 MG, ONCE/SINGLE
     Route: 042
     Dates: start: 20210622, end: 20210622
  9. CARBOPLATIN [Suspect]
     Active Substance: CARBOPLATIN
     Dosage: 280 MG, ONCE/SINGLE
     Route: 042
     Dates: start: 20210713, end: 20210713
  10. CARBOPLATIN [Suspect]
     Active Substance: CARBOPLATIN
     Dosage: 280 MG, TOTAL
     Route: 042
     Dates: start: 20210713
  11. PACLITAXEL [Suspect]
     Active Substance: PACLITAXEL
     Indication: Endometrial cancer
     Dosage: 175 MG/M2, Q3W
     Route: 042
     Dates: start: 20210420
  12. CLEMASTINE FUMARATE [Concomitant]
     Active Substance: CLEMASTINE FUMARATE
     Indication: Prophylaxis
     Dosage: UNK (2 MG BEFORE EACH CYCLE OF CHEMOTHERAPY)
     Route: 042
     Dates: start: 20210420
  13. MAGNESIUM SULFATE [Concomitant]
     Active Substance: MAGNESIUM SULFATE
     Indication: Fluid replacement
     Dosage: UNK (1 AMPOULE BEFORE EACH CYCLE OF CHEMOTHERAPY)
     Route: 042
     Dates: start: 20210420
  14. HYDROCORTISONE [Concomitant]
     Active Substance: HYDROCORTISONE
     Indication: Prophylaxis
     Dosage: UNK (200 MG BEFORE EACH CYCLE OF CHEMOTHERAPY)
     Route: 042
     Dates: start: 20210420
  15. HYDROCORTISONE [Concomitant]
     Active Substance: HYDROCORTISONE
     Indication: Prophylaxis
  16. FILGRASTIM [Concomitant]
     Active Substance: FILGRASTIM
     Indication: Prophylaxis
     Dosage: 1 DOSAGE FORM, QD
     Route: 058
     Dates: start: 20210512
  17. EUTHYROX [Concomitant]
     Active Substance: LEVOTHYROXINE SODIUM
     Indication: Autoimmune thyroiditis
     Dosage: 138 MG, QD
     Route: 048
     Dates: start: 2010
  18. FUROSEMIDE [Concomitant]
     Active Substance: FUROSEMIDE
     Indication: Peripheral swelling
     Dosage: 40 MG, BID
     Route: 048
     Dates: start: 20210301
  19. FUROSEMIDE [Concomitant]
     Active Substance: FUROSEMIDE
     Indication: Premedication
     Dosage: 1 AMPOULE, BEFORE EACH CYCLE OF CHEMOTHERAPY
     Route: 042
     Dates: start: 20210419
  20. FUROSEMIDE [Concomitant]
     Active Substance: FUROSEMIDE
     Indication: Peripheral swelling
     Dosage: 40 MG
     Route: 048
     Dates: start: 20210301
  21. POTASSIUM CHLORIDE [Concomitant]
     Active Substance: POTASSIUM CHLORIDE
     Indication: Hypokalaemia
     Dosage: 1 DOSAGE FORM, QD
     Route: 048
     Dates: start: 20210511, end: 20210621
  22. ONDANSETRON [Concomitant]
     Active Substance: ONDANSETRON
     Indication: Prophylaxis
     Dosage: 8 MG BEFORE EACH CYCLE OF CHEMOTHERAPY
     Route: 042
     Dates: start: 20210420
  23. ATOSSA [Concomitant]
     Indication: Vomiting
     Dosage: 8 MG, BID
     Route: 048
     Dates: start: 20210420
  24. ATOSSA [Concomitant]
     Indication: Nausea
  25. TORECAN [Concomitant]
     Active Substance: THIETHYLPERAZINE MALATE
     Indication: Constipation
     Dosage: 1 DOSAGE FORM, Q12H
     Route: 054
     Dates: start: 20210420
  26. DEXAMETHASONE PHOSPHATE [Concomitant]
     Active Substance: DEXAMETHASONE PHOSPHATE
     Indication: Prophylaxis
     Dosage: 20 MG BEFORE EACH CYCLE OF CHEMOTHERAPY
     Route: 042
     Dates: start: 20210420
  27. SODIUM CHLORIDE [Concomitant]
     Active Substance: SODIUM CHLORIDE
     Indication: Fluid replacement
     Dosage: 1000 ML BEFORE EACH CYCLE OF CHEMOTHERAPY
     Route: 042
     Dates: start: 20210420
  28. SODIUM CHLORIDE [Concomitant]
     Active Substance: SODIUM CHLORIDE
     Indication: Fluid replacement
     Dosage: 1000 ML BEFORE EACH CYCLE OF CHEMOTHERAPY
     Route: 042
     Dates: start: 20210420
  29. SODIUM CHLORIDE [Concomitant]
     Active Substance: SODIUM CHLORIDE
     Route: 042
     Dates: start: 20210419, end: 20210419
  30. AUGMENTIN [Concomitant]
     Active Substance: AMOXICILLIN\CLAVULANATE POTASSIUM
     Indication: Urinary tract infection
     Dosage: 1000 MG, Q12H
     Route: 048
     Dates: start: 20210804, end: 20210810

REACTIONS (1)
  - Thrombosis [Recovered/Resolved]

NARRATIVE: CASE EVENT DATE: 20210811
